FAERS Safety Report 12128272 (Version 1)
Quarter: 2016Q1

REPORT INFORMATION
  Report Type: Spontaneous
  Country: US (occurrence: CA)
  Receive Date: 20160229
  Receipt Date: 20160229
  Transmission Date: 20160526
  Serious: Yes (Hospitalization)
  Sender: FDA-Public Use
  Company Number: CA-CUMBERLAND PHARMACEUTICALS INC.-1048502

PATIENT
  Age: 57 Year
  Sex: Male

DRUGS (1)
  1. KRISTALOSE [Suspect]
     Active Substance: LACTULOSE

REACTIONS (2)
  - Pancreatitis [None]
  - Cholelithiasis [None]
